FAERS Safety Report 6880808-3 (Version None)
Quarter: 2010Q3

REPORT INFORMATION
  Report Type: 
  Country: None (occurrence: None)
  Receive Date: 20100728
  Receipt Date: 20100721
  Transmission Date: 20110219
  Serious: Yes (Other)
  Sender: FDA-Public Use
  Company Number: AU-BRISTOL-MYERS SQUIBB COMPANY-15172984

PATIENT
  Age: 8 Decade
  Sex: Male

DRUGS (1)
  1. IRBESARTAN AND HYDROCHLOROTHIAZIDE [Suspect]
     Dosage: 1DF=150/12.5MG FOR MANY YEARS

REACTIONS (1)
  - TRANSIENT ACANTHOLYTIC DERMATOSIS [None]
